FAERS Safety Report 24281007 (Version 1)
Quarter: 2024Q3

REPORT INFORMATION
  Report Type: Spontaneous
  Country: CN (occurrence: CN)
  Receive Date: 20240904
  Receipt Date: 20240904
  Transmission Date: 20241017
  Serious: Yes (Death, Other)
  Sender: STRIDES
  Company Number: CN-STRIDES ARCOLAB LIMITED-2024SP011003

PATIENT
  Age: 52 Year
  Sex: Female

DRUGS (9)
  1. LETROZOLE [Suspect]
     Active Substance: LETROZOLE
     Indication: Invasive ductal breast carcinoma
     Dosage: 2.5 MILLIGRAM, QD;FOR 28?DAYS; EACH CYCLE WAS A 28-DAY CYCLE
     Route: 048
     Dates: start: 201906, end: 202004
  2. LETROZOLE [Suspect]
     Active Substance: LETROZOLE
     Indication: Metastases to liver
  3. LETROZOLE [Suspect]
     Active Substance: LETROZOLE
     Indication: Metastases to bone
  4. PACLITAXEL [Suspect]
     Active Substance: PACLITAXEL
     Indication: Invasive ductal breast carcinoma
     Dosage: 200 MILLIGRAM, WEEKLY;RECEIVED 7 CYCLES BEFORE LACK OF EFFICACY WAS NOTED.
     Route: 065
     Dates: start: 201901, end: 201906
  5. PACLITAXEL [Suspect]
     Active Substance: PACLITAXEL
     Indication: Metastases to liver
  6. PACLITAXEL [Suspect]
     Active Substance: PACLITAXEL
     Indication: Metastases to bone
  7. PALBOCICLIB [Suspect]
     Active Substance: PALBOCICLIB
     Indication: Invasive ductal breast carcinoma
     Dosage: 125 MILLIGRAM, QD;FOR 21?DAYS; EACH CYCLE WAS A 28-DAY CYCLE
     Route: 065
     Dates: start: 201906, end: 202004
  8. PALBOCICLIB [Suspect]
     Active Substance: PALBOCICLIB
     Indication: Metastases to liver
  9. PALBOCICLIB [Suspect]
     Active Substance: PALBOCICLIB
     Indication: Metastases to bone

REACTIONS (7)
  - Neutrophil count decreased [Recovered/Resolved]
  - Malignant neoplasm progression [Fatal]
  - Drug ineffective for unapproved indication [Fatal]
  - Red blood cell count decreased [Recovered/Resolved]
  - White blood cell count decreased [Recovered/Resolved]
  - Haemoglobin decreased [Recovered/Resolved]
  - Platelet count decreased [Recovered/Resolved]
